FAERS Safety Report 16589763 (Version 1)
Quarter: 2019Q3

REPORT INFORMATION
  Report Type: Other
  Country: US (occurrence: US)
  Receive Date: 20190718
  Receipt Date: 20190718
  Transmission Date: 20191004
  Serious: No
  Sender: FDA-Public Use
  Company Number: US-SWEDISH ORPHAN BIOVITRUM-2019US0859

PATIENT
  Sex: Female

DRUGS (10)
  1. KINERET [Suspect]
     Active Substance: ANAKINRA
     Route: 058
     Dates: end: 20190321
  2. BENADRYL [Concomitant]
     Active Substance: DIPHENHYDRAMINE HYDROCHLORIDE
     Route: 042
  3. PEPCID [Concomitant]
     Active Substance: FAMOTIDINE
  4. VITAMINS [Concomitant]
     Active Substance: VITAMINS
  5. TRENTAL [Concomitant]
     Active Substance: PENTOXIFYLLINE
  6. KINERET [Suspect]
     Active Substance: ANAKINRA
     Route: 058
     Dates: start: 20190331
  7. AMITRIPTYLINE [Concomitant]
     Active Substance: AMITRIPTYLINE
  8. CORLANOR [Concomitant]
     Active Substance: IVABRADINE HYDROCHLORIDE
  9. DIAMOX SEQUELS [Concomitant]
     Active Substance: ACETAZOLAMIDE
  10. SALINE INFUSION [Concomitant]

REACTIONS (1)
  - Rash pruritic [Unknown]
